FAERS Safety Report 7386612-4 (Version None)
Quarter: 2011Q1

REPORT INFORMATION
  Report Type: 
  Country: None (occurrence: None)
  Receive Date: 20110323
  Receipt Date: 20110323
  Transmission Date: 20110831
  Serious: Yes (Hospitalization, Other)
  Sender: FDA-Public Use
  Company Number: CL-301-2011

PATIENT
  Age: 77 Year

DRUGS (9)
  1. ASPIRIN [Concomitant]
  2. LEVOTHYROXINE [Concomitant]
  3. PONDOLOL [Concomitant]
  4. SIMVASTATIN [Suspect]
     Dosage: 40MG
  5. FUROSEMIDE [Concomitant]
  6. ISOSORBIDE MONONITRATE [Concomitant]
  7. CIPROFLOXACIN UNK [Suspect]
     Indication: URINARY TRACT INFECTION
  8. CIMETIDINE [Concomitant]
  9. NICORANDIL [Concomitant]

REACTIONS (7)
  - RHABDOMYOLYSIS [None]
  - MYALGIA [None]
  - MUSCULAR WEAKNESS [None]
  - DRUG INTERACTION [None]
  - URINARY TRACT INFECTION [None]
  - CHROMATURIA [None]
  - DYSSTASIA [None]
